FAERS Safety Report 24153368 (Version 2)
Quarter: 2024Q3

REPORT INFORMATION
  Report Type: Spontaneous
  Country: FR (occurrence: None)
  Receive Date: 20240730
  Receipt Date: 20240731
  Transmission Date: 20241017
  Serious: Yes (Life-Threatening, Hospitalization)
  Sender: ASTRAZENECA
  Company Number: 2024A172965

PATIENT
  Age: 37 Year
  Sex: Male

DRUGS (11)
  1. QUETIAPINE [Suspect]
     Active Substance: QUETIAPINE
     Indication: Depression
  2. CLONAZEPAM [Suspect]
     Active Substance: CLONAZEPAM
  3. COCAINE [Suspect]
     Active Substance: COCAINE
  4. ALCOHOL [Suspect]
     Active Substance: ALCOHOL
  5. DEXTROMETHORPHAN [Suspect]
     Active Substance: DEXTROMETHORPHAN
  6. METHADONE [Suspect]
     Active Substance: METHADONE HYDROCHLORIDE
  7. BUPRENORPHINE [Suspect]
     Active Substance: BUPRENORPHINE
  8. NALOXONE [Concomitant]
     Active Substance: NALOXONE
  9. FLUMAZENIL [Concomitant]
     Active Substance: FLUMAZENIL
  10. TRAMADOL [Concomitant]
     Active Substance: TRAMADOL\TRAMADOL HYDROCHLORIDE
  11. CANNABIS SATIVA SUBSP. INDICA TOP [Concomitant]
     Active Substance: CANNABIS SATIVA SUBSP. INDICA TOP

REACTIONS (7)
  - Bradypnoea [Recovered/Resolved]
  - Agitation [Recovered/Resolved]
  - Coma [Recovered/Resolved]
  - Toxicity to various agents [Recovered/Resolved]
  - Tachycardia [Recovered/Resolved]
  - Miosis [Recovered/Resolved]
  - Drug abuse [Not Recovered/Not Resolved]

NARRATIVE: CASE EVENT DATE: 20230828
